FAERS Safety Report 8276992-X (Version None)
Quarter: 2012Q2

REPORT INFORMATION
  Report Type: 
  Country: None (occurrence: None)
  Receive Date: 20120406
  Receipt Date: 20120402
  Transmission Date: 20120825
  Serious: Yes (Hospitalization)
  Sender: FDA-Public Use
  Company Number: 2012SP004375

PATIENT
  Age: 82 Year
  Sex: Female

DRUGS (6)
  1. LASIX [Concomitant]
  2. IMOVANE (ZOPICLONE) [Suspect]
     Indication: INSOMNIA
     Dosage: 7.5 MG;QD;PO
     Route: 048
     Dates: start: 20101125, end: 20111125
  3. LIMPIDEX [Concomitant]
  4. NAPRILENE [Concomitant]
  5. MIRTAZAPINE [Suspect]
     Indication: DEPRESSION
     Dosage: 15 MG;QD;PO
     Route: 048
     Dates: start: 20110527, end: 20111125
  6. ASPIRIN [Concomitant]

REACTIONS (3)
  - SOPOR [None]
  - SOMNOLENCE [None]
  - INSOMNIA [None]
